FAERS Safety Report 7500241-0 (Version None)
Quarter: 2011Q2

REPORT INFORMATION
  Report Type: 
  Country: None (occurrence: None)
  Receive Date: 20110524
  Receipt Date: 20110520
  Transmission Date: 20111010
  Serious: Yes (Life-Threatening, Hospitalization)
  Sender: FDA-Public Use
  Company Number: GB-ASTRAZENECA-2011SE30872

PATIENT
  Age: 11 Year
  Sex: Female
  Weight: 88.7 kg

DRUGS (6)
  1. ZOPICLONE [Concomitant]
  2. QUETIAPINE [Suspect]
     Route: 048
     Dates: start: 20110507, end: 20110509
  3. LORAZEPAM [Concomitant]
  4. QUETIAPINE [Suspect]
     Indication: PSYCHOTIC DISORDER
     Route: 048
     Dates: start: 20101119, end: 20110425
  5. QUETIAPINE [Suspect]
     Route: 048
     Dates: start: 20110426, end: 20110506
  6. LACTULOSE [Concomitant]

REACTIONS (5)
  - BLOOD CREATINE PHOSPHOKINASE INCREASED [None]
  - HYPERHIDROSIS [None]
  - PYREXIA [None]
  - BLOOD PRESSURE FLUCTUATION [None]
  - AGITATION [None]
